FAERS Safety Report 25762182 (Version 1)
Quarter: 2025Q3

REPORT INFORMATION
  Report Type: Spontaneous
  Country: US (occurrence: None)
  Receive Date: 20250904
  Receipt Date: 20250904
  Transmission Date: 20251020
  Serious: Yes (Disabling, Other)
  Sender: FDA-CTU
  Company Number: None

PATIENT
  Age: 85 Year
  Sex: Female
  Weight: 54.43 kg

DRUGS (6)
  1. CEPHALEXIN [Suspect]
     Active Substance: CEPHALEXIN
     Indication: Urinary tract infection
     Dosage: FREQUENCY : DAILY;?
     Route: 048
  2. LEVOFLOXACIN [Suspect]
     Active Substance: LEVOFLOXACIN
  3. RESTASIS [Concomitant]
     Active Substance: CYCLOSPORINE
  4. SEPH [Concomitant]
  5. DEMANNOSE [Concomitant]
     Active Substance: DEMANNOSE
  6. COLLAGEN [Concomitant]
     Active Substance: COLLAGEN

REACTIONS (6)
  - Walking aid user [None]
  - Drug ineffective [None]
  - Hypoaesthesia [None]
  - General physical health deterioration [None]
  - Balance disorder [None]
  - Tremor [None]
